FAERS Safety Report 5020583-0 (Version None)
Quarter: 2006Q2

REPORT INFORMATION
  Report Type: 
  Country: None (occurrence: None)
  Receive Date: 20060602
  Receipt Date: 20060523
  Transmission Date: 20061013
  Serious: Yes (Other)
  Sender: FDA-Public Use
  Company Number: 430047K06USA

PATIENT
  Age: 53 Year
  Sex: Male

DRUGS (7)
  1. NOVANTRONE [Suspect]
     Indication: MULTIPLE SCLEROSIS
     Dosage: 1 MONTHS
     Dates: start: 20051101, end: 20060101
  2. NOVANTRONE [Suspect]
     Indication: MULTIPLE SCLEROSIS
     Dosage: 1 MONTHS
     Dates: start: 20060401
  3. CELEBREX [Concomitant]
  4. SKELAXIN [Concomitant]
  5. ALLEGRA [Concomitant]
  6. OXYCONTIN [Concomitant]
  7. HYDROCODONE AND ACETAMINOPHEN (VICODIN) [Concomitant]

REACTIONS (1)
  - NO ADVERSE DRUG EFFECT [None]
